FAERS Safety Report 20140577 (Version 3)
Quarter: 2021Q4

REPORT INFORMATION
  Report Type: Spontaneous
  Country: US (occurrence: US)
  Receive Date: 20211202
  Receipt Date: 20211202
  Transmission Date: 20220303
  Serious: Yes (Other)
  Sender: FDA-Public Use
  Company Number: US-NOVARTISPH-NVSC2021US270492

PATIENT
  Age: 60 Year
  Sex: Male

DRUGS (1)
  1. LUTATHERA [Suspect]
     Active Substance: LUTETIUM OXODOTREOTIDE LU-177
     Indication: Product used for unknown indication
     Dosage: 2 MBQ
     Route: 065

REACTIONS (3)
  - Neuroendocrine carcinoma metastatic [Unknown]
  - Metastases to liver [Unknown]
  - Ill-defined disorder [Unknown]
